FAERS Safety Report 12126334 (Version 3)
Quarter: 2016Q1

REPORT INFORMATION
  Report Type: Spontaneous
  Country: IT (occurrence: IT)
  Receive Date: 20160229
  Receipt Date: 20160323
  Transmission Date: 20160526
  Serious: Yes (Death, Hospitalization)
  Sender: FDA-Public Use
  Company Number: IT-SA-2016SA038123

PATIENT
  Age: 4 Year
  Sex: Female
  Weight: 92 kg

DRUGS (1)
  1. CEREZYME [Suspect]
     Active Substance: IMIGLUCERASE
     Indication: GAUCHER^S DISEASE TYPE III
     Dosage: DOSE:800 UNIT(S)
     Route: 041

REACTIONS (2)
  - Epilepsy [Unknown]
  - Disease progression [Fatal]

NARRATIVE: CASE EVENT DATE: 2016
